FAERS Safety Report 4369523-8 (Version None)
Quarter: 2004Q2

REPORT INFORMATION
  Report Type: 
  Country: None (occurrence: None)
  Receive Date: 20040527
  Receipt Date: 20040521
  Transmission Date: 20050107
  Serious: Yes (Life-Threatening, Hospitalization)
  Sender: FDA-Public Use
  Company Number: OMPQ-PR-0405S-0412

PATIENT
  Age: 60 Year
  Sex: Female

DRUGS (13)
  1. OMNIPAQUE 140 [Suspect]
     Indication: NAUSEA
     Dosage: 100 ML, SINGLE DOSE, I.V.
     Route: 042
     Dates: start: 20040518, end: 20040518
  2. OMNIPAQUE 140 [Suspect]
     Indication: VOMITING
     Dosage: 100 ML, SINGLE DOSE, I.V.
     Route: 042
     Dates: start: 20040518, end: 20040518
  3. OMNIPAQUE 140 [Suspect]
     Indication: WEIGHT DECREASED
     Dosage: 100 ML, SINGLE DOSE, I.V.
     Route: 042
     Dates: start: 20040518, end: 20040518
  4. FLUTICASONE PROPIONATE (FLOVENT) [Concomitant]
  5. SALBUTAMOL (ALBUTEROL) [Concomitant]
  6. HYDROXYCHLOROQUINE PHOSPHATE (PLAQUENIL) [Concomitant]
  7. SYNTHROID [Concomitant]
  8. MOMETASONE FUROATE NASAL SPRAY (NASONEX) [Concomitant]
  9. PROZAC [Concomitant]
  10. XANAX [Concomitant]
  11. RABEPRAZOLE SODIUM (ACIPHEX) [Concomitant]
  12. GLYCOPYRRONIUM BROMIDE (ROBINUL FORTE) [Concomitant]
  13. TRIMETHOBENZAMIDE HYDROCHLORIDE (TIGAN) [Concomitant]

REACTIONS (9)
  - BODY TEMPERATURE INCREASED [None]
  - CARDIO-RESPIRATORY ARREST [None]
  - IATROGENIC INJURY [None]
  - OEDEMA [None]
  - POST PROCEDURAL COMPLICATION [None]
  - PULMONARY OEDEMA [None]
  - RESPIRATORY DISORDER [None]
  - RESPIRATORY DISTRESS [None]
  - SUBCUTANEOUS EMPHYSEMA [None]
